FAERS Safety Report 6796024-X (Version None)
Quarter: 2010Q2

REPORT INFORMATION
  Report Type: 
  Country: None (occurrence: None)
  Receive Date: 20100625
  Receipt Date: 20100624
  Transmission Date: 20101027
  Serious: Yes (Hospitalization)
  Sender: FDA-Public Use
  Company Number: FR-WYE-G06278810

PATIENT
  Sex: Male

DRUGS (16)
  1. TAZOCILLINE [Suspect]
     Indication: URINARY TRACT INFECTION ENTEROCOCCAL
     Route: 042
     Dates: start: 20091119, end: 20091203
  2. LIORESAL [Concomitant]
     Indication: MUSCLE CONTRACTURE
     Dosage: 120 MG TOTAL DAILY
     Route: 048
     Dates: end: 20091124
  3. EQUANIL [Concomitant]
     Dosage: 200 MG (FREQUENCY UNKNOWN)
     Route: 048
  4. TRANXENE [Concomitant]
     Indication: ANXIETY
     Dosage: UNKNOWN
     Route: 048
     Dates: end: 20091124
  5. HALDOL [Concomitant]
     Indication: ANXIETY
     Route: 048
  6. ATARAX [Concomitant]
     Indication: ANXIETY
     Route: 048
     Dates: start: 20091124, end: 20091202
  7. VITAMINE B1 B6 BAYER [Concomitant]
     Route: 048
     Dates: start: 20091125
  8. NEXIUM [Concomitant]
     Indication: ULCER
     Route: 048
     Dates: start: 20091125, end: 20091203
  9. FUROSEMIDE [Concomitant]
     Indication: HYPERTENSION
     Route: 048
     Dates: start: 20091125, end: 20091203
  10. SPECIAFOLDINE [Concomitant]
     Route: 048
     Dates: start: 20091125
  11. AMLOR [Concomitant]
     Indication: HYPERTENSION
     Route: 048
     Dates: start: 20091125
  12. EUPRESSYL [Concomitant]
     Indication: HYPERTENSION
     Route: 048
     Dates: start: 20091125, end: 20091203
  13. KEPPRA [Concomitant]
     Indication: EPILEPSY
     Dosage: UNKNOWN
     Route: 048
     Dates: start: 20091124
  14. CALCIPARINE [Concomitant]
     Route: 058
     Dates: start: 20091124
  15. EPREX [Concomitant]
     Indication: ANAEMIA
     Dosage: UNKNOWN
     Route: 042
  16. RIVOTRIL [Concomitant]
     Dosage: UNKNOWN
     Route: 048
     Dates: start: 20091124

REACTIONS (3)
  - NEPHROPATHY TOXIC [None]
  - RENAL TUBULAR NECROSIS [None]
  - TUBULOINTERSTITIAL NEPHRITIS [None]
